FAERS Safety Report 6802622-7 (Version None)
Quarter: 2010Q2

REPORT INFORMATION
  Report Type: 
  Country: None (occurrence: None)
  Receive Date: 20100628
  Receipt Date: 20100615
  Transmission Date: 20101027
  Serious: Yes (Hospitalization)
  Sender: FDA-Public Use
  Company Number: CA-ABBOTT-10P-028-0652291-00

PATIENT
  Sex: Female
  Weight: 54.48 kg

DRUGS (5)
  1. HUMIRA [Suspect]
     Indication: CROHN'S DISEASE
     Route: 058
     Dates: start: 20100219, end: 20100401
  2. M-ELSON [Concomitant]
     Indication: PAIN
  3. STATEX [Concomitant]
     Indication: PAIN
     Dosage: 5 TABS 4 TIMES
     Route: 048
  4. IRON [Concomitant]
     Indication: HAEMOGLOBIN DECREASED
  5. VIT B 12 [Concomitant]
     Indication: DRUG USE FOR UNKNOWN INDICATION
     Route: 030

REACTIONS (4)
  - INFUSION SITE EXTRAVASATION [None]
  - INFUSION SITE INFECTION [None]
  - PYREXIA [None]
  - VASCULAR RUPTURE [None]
